FAERS Safety Report 6510163-X (Version None)
Quarter: 2009Q4

REPORT INFORMATION
  Report Type: 
  Country: None (occurrence: None)
  Receive Date: 20091222
  Receipt Date: 20091214
  Transmission Date: 20100525
  Serious: Yes (Hospitalization)
  Sender: FDA-Public Use
  Company Number: JP-KINGPHARMUSA00001-K200901565

PATIENT
  Age: 49 Year
  Sex: Male

DRUGS (3)
  1. BICILLIN L-A [Suspect]
     Indication: ENDOCARDITIS
     Dosage: 4000000 U, Q4H
  2. GENTAMICIN SULFATE [Concomitant]
     Dosage: 180 MG, Q 8 HOURS
  3. DIURETICS [Concomitant]

REACTIONS (9)
  - BACK PAIN [None]
  - CYSTITIS HAEMORRHAGIC [None]
  - DYSURIA [None]
  - EOSINOPHILIA [None]
  - HAEMATURIA [None]
  - HYDRONEPHROSIS [None]
  - HYDROURETER [None]
  - POLLAKIURIA [None]
  - RENAL FAILURE ACUTE [None]
